FAERS Safety Report 15172009 (Version 1)
Quarter: 2018Q3

REPORT INFORMATION
  Report Type: Report from Study
  Country: US (occurrence: US)
  Receive Date: 20180720
  Receipt Date: 20180720
  Transmission Date: 20181010
  Serious: No
  Sender: FDA-Public Use
  Company Number: US-AMGEN-USASL2018056119

PATIENT
  Age: 69 Year
  Sex: Male
  Weight: 107.3 kg

DRUGS (3)
  1. APIXABAN [Concomitant]
     Active Substance: APIXABAN
     Dosage: UNK
  2. REPATHA [Suspect]
     Active Substance: EVOLOCUMAB
     Indication: LOW DENSITY LIPOPROTEIN INCREASED
     Dosage: 140 MG, Q2WK
     Route: 065
     Dates: start: 2015
  3. WARFARIN [Concomitant]
     Active Substance: WARFARIN
     Dosage: UNK

REACTIONS (8)
  - Injection site swelling [Recovered/Resolved]
  - Injection site pain [Recovered/Resolved]
  - Injection site rash [Unknown]
  - Pruritus [Unknown]
  - Peripheral swelling [Unknown]
  - Wrong technique in product usage process [Unknown]
  - Accidental exposure to product [Unknown]
  - Myalgia [Unknown]

NARRATIVE: CASE EVENT DATE: 2015
